FAERS Safety Report 7007757 (Version 5)
Quarter: 2012Q4

REPORT INFORMATION
  Report Type: 
  Country: CA (occurrence: CA)
  Receive Date: 20090601
  Receipt Date: 20121109
  Transmission Date: 20130627
  Serious: Yes (Death, Hospitalization, Other)
  Sender: FDA-Public Use
  Company Number: PHMT2006CA01103

PATIENT
  Sex: Female

DRUGS (7)
  1. SANDOSTATIN LAR [Suspect]
     Indication: CARCINOID TUMOUR
     Dosage: 30 mg every 4 weeks
     Route: 030
     Dates: start: 20060130
  2. SANDOSTATIN LAR [Suspect]
     Dosage: 20 mg every 4 weeks
     Route: 030
  3. SANDOSTATIN [Suspect]
     Route: 058
  4. ATIVAN [Concomitant]
  5. CODEINE [Concomitant]
  6. MULTIVITAMINS [Concomitant]
  7. COTAZYM [Concomitant]

REACTIONS (32)
  - Death [Fatal]
  - Cerebrovascular accident [Recovered/Resolved with Sequelae]
  - Hypercholesterolaemia [Unknown]
  - Hydronephrosis [Unknown]
  - Kidney infection [Recovered/Resolved]
  - Hypotension [Unknown]
  - Weight decreased [Not Recovered/Not Resolved]
  - Malabsorption [Unknown]
  - Blood pressure increased [Unknown]
  - Hepatic neoplasm [Unknown]
  - Intestinal obstruction [Recovered/Resolved]
  - Vomiting [Recovered/Resolved]
  - Diarrhoea [Not Recovered/Not Resolved]
  - Vitamin B12 decreased [Unknown]
  - Defaecation urgency [Unknown]
  - Frequent bowel movements [Unknown]
  - Gastrooesophageal reflux disease [Unknown]
  - Urinary tract infection [Unknown]
  - Injection site reaction [Unknown]
  - Arthralgia [Unknown]
  - Hyperhidrosis [Unknown]
  - Oesophageal pain [Unknown]
  - Flushing [Unknown]
  - Injection site mass [Unknown]
  - Drug effect decreased [Unknown]
  - Serum serotonin increased [Unknown]
  - Drug ineffective [Unknown]
  - Nausea [Unknown]
  - Decreased appetite [Unknown]
  - Injection site discomfort [Unknown]
  - Alopecia [Unknown]
  - Tachycardia [Unknown]
